FAERS Safety Report 15724482 (Version 2)
Quarter: 2019Q1

REPORT INFORMATION
  Report Type: Report from Study
  Country: DE (occurrence: DE)
  Receive Date: 20181214
  Receipt Date: 20190117
  Transmission Date: 20190417
  Serious: Yes (Death, Hospitalization, Other)
  Sender: FDA-Public Use
  Company Number: PHHY2017DE078449

PATIENT
  Age: 69 Year
  Sex: Female
  Weight: 74 kg

DRUGS (10)
  1. TRAMETINIB [Suspect]
     Active Substance: TRAMETINIB
     Indication: METASTATIC MALIGNANT MELANOMA
     Dosage: 2 MG, QD
     Route: 048
     Dates: start: 20170208, end: 20170626
  2. XARELTO [Concomitant]
     Active Substance: RIVAROXABAN
     Indication: MALIGNANT MELANOMA
     Dosage: 20 MG, QD
     Route: 048
     Dates: start: 20150510
  3. TAFINLAR [Suspect]
     Active Substance: DABRAFENIB MESYLATE
     Indication: METASTATIC MALIGNANT MELANOMA
     Dosage: 150 MG, BID
     Route: 048
     Dates: start: 20170208, end: 20170626
  4. SIMVASTATIN. [Concomitant]
     Active Substance: SIMVASTATIN
     Indication: PRODUCT USED FOR UNKNOWN INDICATION
     Dosage: 40 MG, QD
     Route: 048
  5. BISOPROLOL [Concomitant]
     Active Substance: BISOPROLOL
     Indication: PRODUCT USED FOR UNKNOWN INDICATION
     Dosage: 1.25 MG, QD
     Route: 065
  6. CIPROFLOXACIN. [Concomitant]
     Active Substance: CIPROFLOXACIN
     Indication: MALIGNANT MELANOMA
     Dosage: 500 MG, BID
     Route: 048
     Dates: start: 20170308, end: 20170323
  7. IRBESARTAN. [Concomitant]
     Active Substance: IRBESARTAN
     Indication: PRODUCT USED FOR UNKNOWN INDICATION
     Dosage: 300 MG, BID
     Route: 065
  8. NOVAMINSULFONE SODIUM [Concomitant]
     Active Substance: METAMIZOLE
     Indication: MALIGNANT MELANOMA
     Dosage: 4 MG, QD
     Route: 048
     Dates: start: 20170308
  9. TILIDIN COMP [Concomitant]
     Active Substance: NALOXONE HYDROCHLORIDE\TILIDINE HYDROCHLORIDE
     Indication: MALIGNANT MELANOMA
     Dosage: 100 MG, BID
     Route: 048
     Dates: start: 20170308
  10. ENOXAPARIN [Concomitant]
     Active Substance: ENOXAPARIN
     Indication: MALIGNANT MELANOMA
     Dosage: 40 MG, QD
     Route: 058
     Dates: start: 20170308, end: 20170408

REACTIONS (8)
  - Pathological fracture [Recovered/Resolved with Sequelae]
  - Pulmonary embolism [Recovering/Resolving]
  - Metastases to central nervous system [Fatal]
  - Deep vein thrombosis [Recovering/Resolving]
  - Lymphocyte count decreased [Fatal]
  - Malignant neoplasm progression [Fatal]
  - Epilepsy [Fatal]
  - Metastases to bone [Unknown]

NARRATIVE: CASE EVENT DATE: 20170308
